FAERS Safety Report 5667286-7 (Version None)
Quarter: 2008Q1

REPORT INFORMATION
  Report Type: 
  Country: None (occurrence: None)
  Receive Date: 20080315
  Receipt Date: 20080116
  Transmission Date: 20080703
  Serious: No
  Sender: FDA-Public Use
  Company Number: US-ABBOTT-08P-163-0434106-00

PATIENT
  Sex: Male
  Weight: 70.37 kg

DRUGS (4)
  1. HUMIRA [Suspect]
     Indication: PSORIASIS
     Route: 058
     Dates: start: 20071101
  2. HUMIRA [Suspect]
     Route: 058
  3. HUMIRA [Suspect]
     Route: 058
  4. LORTAB [Concomitant]
     Indication: BACK PAIN

REACTIONS (8)
  - DRUG INEFFECTIVE [None]
  - EAR INFECTION [None]
  - HEADACHE [None]
  - NASAL CONGESTION [None]
  - PRURITUS [None]
  - PSORIASIS [None]
  - SINUSITIS [None]
  - TINNITUS [None]
